FAERS Safety Report 14738203 (Version 1)
Quarter: 2018Q2

REPORT INFORMATION
  Report Type: Spontaneous
  Country: US (occurrence: US)
  Receive Date: 20180409
  Receipt Date: 20180409
  Transmission Date: 20180711
  Serious: No
  Sender: FDA-Public Use
  Company Number: US-TEVA-2018-US-878332

PATIENT

DRUGS (1)
  1. TOPOSAR [Suspect]
     Active Substance: ETOPOSIDE
     Dosage: 20 MG/ML, 100 MG

REACTIONS (1)
  - Occupational exposure to product [Unknown]
